FAERS Safety Report 8764544 (Version 1)
Quarter: 2012Q4

REPORT INFORMATION
  Report Type: 
  Country: US (occurrence: US)
  Receive Date: 20120831
  Receipt Date: 20120831
  Transmission Date: 20130627
  Serious: Yes (Other)
  Sender: FDA-Public Use
  Company Number: US-BAXTER-2012BAX015485

PATIENT
  Sex: Male

DRUGS (3)
  1. DIANEAL LOW CALCIUM [Suspect]
     Indication: PERITONEAL DIALYSIS
     Route: 033
     Dates: end: 20120823
  2. DIANEAL LOW CALCIUM [Suspect]
     Route: 033
     Dates: end: 20120823
  3. DIANEAL LOW CALCIUM W/ DEXTROSE 2.5% [Suspect]
     Indication: PERITONEAL DIALYSIS
     Route: 033
     Dates: end: 20120823

REACTIONS (2)
  - Hydrocele [Unknown]
  - Muscle spasms [Unknown]
